FAERS Safety Report 5339006-7 (Version None)
Quarter: 2007Q2

REPORT INFORMATION
  Report Type: 
  Country: None (occurrence: None)
  Receive Date: 20070530
  Receipt Date: 20070518
  Transmission Date: 20071010
  Serious: Yes (Hospitalization)
  Sender: FDA-Public Use
  Company Number: GB-PFIZER INC-2007022443

PATIENT
  Age: 52 Year
  Sex: Female

DRUGS (1)
  1. HYDROCORTISONE ACETATE CREAM [Suspect]
     Indication: DERMATITIS CONTACT
     Dosage: TEXT:0.1%
     Route: 061

REACTIONS (1)
  - SKIN ATROPHY [None]
